FAERS Safety Report 8352450-9 (Version None)
Quarter: 2012Q2

REPORT INFORMATION
  Report Type: 
  Country: None (occurrence: None)
  Receive Date: 20120511
  Receipt Date: 20120508
  Transmission Date: 20120825
  Serious: Yes (Hospitalization, Other)
  Sender: FDA-Public Use
  Company Number: PHFR2012GB002430

PATIENT
  Sex: Female

DRUGS (3)
  1. CLOZARIL [Suspect]
     Route: 048
     Dates: start: 20120423
  2. BLOOD TRANSFUSION [Concomitant]
  3. CLOZARIL [Suspect]
     Indication: SCHIZOPHRENIA
     Route: 048
     Dates: start: 20120224, end: 20120413

REACTIONS (5)
  - NEUTROPHIL COUNT INCREASED [None]
  - WHITE BLOOD CELL COUNT INCREASED [None]
  - GENERAL PHYSICAL HEALTH DETERIORATION [None]
  - PLATELET COUNT INCREASED [None]
  - PELVIC INFLAMMATORY DISEASE [None]
